FAERS Safety Report 17238546 (Version 1)
Quarter: 2020Q1

REPORT INFORMATION
  Report Type: Spontaneous
  Country: US (occurrence: US)
  Receive Date: 20200104
  Receipt Date: 20200104
  Transmission Date: 20200409
  Serious: Yes (Disabling)
  Sender: FDA-Public Use
  Company Number: None

PATIENT
  Age: 41 Year
  Sex: Female
  Weight: 85.95 kg

DRUGS (2)
  1. SIMPONI ARIA [Suspect]
     Active Substance: GOLIMUMAB
     Indication: PSORIASIS
     Dates: start: 20190828, end: 20191119
  2. SIMPONI ARIA [Suspect]
     Active Substance: GOLIMUMAB
     Indication: PSORIATIC ARTHROPATHY
     Dates: start: 20190828, end: 20191119

REACTIONS (4)
  - Palmoplantar pustulosis [None]
  - Condition aggravated [None]
  - Skin exfoliation [None]
  - Psoriasis [None]

NARRATIVE: CASE EVENT DATE: 20191106
